FAERS Safety Report 4664344-0 (Version None)
Quarter: 2005Q2

REPORT INFORMATION
  Report Type: 
  Country: None (occurrence: None)
  Receive Date: 20050518
  Receipt Date: 20050512
  Transmission Date: 20051028
  Serious: Yes (Life-Threatening)
  Sender: FDA-Public Use
  Company Number: 2005CG00915

PATIENT
  Age: 69 Year
  Sex: Male

DRUGS (5)
  1. CRESTOR [Suspect]
     Route: 048
  2. ALDALIX [Suspect]
     Route: 048
  3. AMARYL [Suspect]
     Route: 048
  4. SELOKEN [Concomitant]
     Route: 048
  5. PRAZOSIN HCL [Concomitant]

REACTIONS (5)
  - CHOLELITHIASIS [None]
  - NECROSIS OF ARTERY [None]
  - PANCREATITIS HAEMORRHAGIC [None]
  - PANCREATITIS NECROTISING [None]
  - RENAL INFARCT [None]
